FAERS Safety Report 6106315-3 (Version None)
Quarter: 2009Q1

REPORT INFORMATION
  Report Type: 
  Country: None (occurrence: None)
  Receive Date: 20090306
  Receipt Date: 20090223
  Transmission Date: 20090719
  Serious: Yes (Hospitalization)
  Sender: FDA-Public Use
  Company Number: PHHY2009FR06769

PATIENT
  Age: 67 Year
  Sex: Female

DRUGS (7)
  1. ESIDRIX [Suspect]
     Dosage: 12.5 MG/DAY
     Route: 048
     Dates: end: 20081117
  2. TRIATEC [Suspect]
     Dosage: 1 DF, QD
     Route: 048
     Dates: end: 20081117
  3. METHOTREXATE [Suspect]
     Dosage: 10 MG WEEKLY
     Route: 048
  4. METHOTREXATE [Suspect]
     Dosage: 20 MG
     Route: 048
     Dates: start: 20081110, end: 20081110
  5. METHOTREXATE [Suspect]
     Dosage: 10 MG WEEKLY
     Route: 048
     Dates: end: 20081117
  6. AMARYL [Concomitant]
     Dosage: UNK
  7. GLUCOPHAGE [Concomitant]
     Dosage: UNK

REACTIONS (6)
  - BLOOD PRESSURE SYSTOLIC DECREASED [None]
  - DIARRHOEA [None]
  - ERYSIPELAS [None]
  - PRESYNCOPE [None]
  - RENAL FAILURE ACUTE [None]
  - VOMITING [None]
